FAERS Safety Report 5884688-4 (Version None)
Quarter: 2008Q3

REPORT INFORMATION
  Report Type: 
  Country: None (occurrence: None)
  Receive Date: 20080911
  Receipt Date: 20080827
  Transmission Date: 20090109
  Serious: Yes (Death, Hospitalization)
  Sender: FDA-Public Use
  Company Number: 2008002106

PATIENT
  Age: 50 Year
  Sex: Male

DRUGS (4)
  1. TARCEVA [Suspect]
     Indication: LUNG ADENOCARCINOMA
     Dosage: (150 MG, QD), ORAL
     Route: 048
     Dates: start: 20080725, end: 20080805
  2. MECLIZINE [Concomitant]
  3. MOSAPRIDE CITRATE (MOSAPRIDE CITRATE) [Concomitant]
  4. BROWN MIXTURE (BROWN MIXTURE) [Concomitant]

REACTIONS (5)
  - INTERSTITIAL LUNG DISEASE [None]
  - MALIGNANT NEOPLASM PROGRESSION [None]
  - QUALITY OF LIFE DECREASED [None]
  - RASH [None]
  - RESPIRATORY FAILURE [None]
